FAERS Safety Report 16634525 (Version 2)
Quarter: 2019Q3

REPORT INFORMATION
  Report Type: Spontaneous
  Country: KR (occurrence: KR)
  Receive Date: 20190726
  Receipt Date: 20190805
  Transmission Date: 20191004
  Serious: Yes (Other)
  Sender: FDA-Public Use
  Company Number: KR-009507513-1907KOR013813

PATIENT
  Age: 77 Year
  Sex: Male

DRUGS (3)
  1. PEMBROLIZUMAB. [Suspect]
     Active Substance: PEMBROLIZUMAB
     Indication: SMALL CELL LUNG CANCER METASTATIC
     Dosage: 46 DAYS BEFORE PRESENTATION
  2. PEMBROLIZUMAB. [Suspect]
     Active Substance: PEMBROLIZUMAB
     Dosage: 25 DAYS BEFORE PRESENTATION
  3. PEMBROLIZUMAB. [Suspect]
     Active Substance: PEMBROLIZUMAB
     Dosage: 3 DAYS BEFORE PRESENTATION

REACTIONS (3)
  - Sympathetic ophthalmia [Recovered/Resolved]
  - Choroidal detachment [Recovered/Resolved]
  - Product use in unapproved indication [Unknown]
